FAERS Safety Report 17984513 (Version 5)
Quarter: 2020Q4

REPORT INFORMATION
  Report Type: Spontaneous
  Country: ES (occurrence: ES)
  Receive Date: 20200706
  Receipt Date: 20201123
  Transmission Date: 20210113
  Serious: No
  Sender: FDA-Public Use
  Company Number: ES-JNJFOC-20200631767

PATIENT
  Sex: Female

DRUGS (12)
  1. DUROGESIC MATRIX [Suspect]
     Active Substance: FENTANYL
     Indication: PRODUCT USED FOR UNKNOWN INDICATION
     Dosage: 50.00 MCG/HR?START DATE:  4 OR 5 YEARS AGO
     Route: 062
  2. DUROGESIC MATRIX [Suspect]
     Active Substance: FENTANYL
     Indication: PRODUCT USED FOR UNKNOWN INDICATION
     Dosage: STRENGTH: 50.00 MCG/HR
     Route: 062
  3. DUROGESIC MATRIX [Suspect]
     Active Substance: FENTANYL
  4. DUROGESIC MATRIX [Suspect]
     Active Substance: FENTANYL
  5. DUROGESIC MATRIX [Suspect]
     Active Substance: FENTANYL
  6. DUROGESIC MATRIX [Suspect]
     Active Substance: FENTANYL
  7. DUROGESIC MATRIX [Suspect]
     Active Substance: FENTANYL
     Route: 062
  8. DUROGESIC MATRIX [Suspect]
     Active Substance: FENTANYL
  9. DUROGESIC MATRIX [Suspect]
     Active Substance: FENTANYL
  10. DUROGESIC MATRIX [Suspect]
     Active Substance: FENTANYL
  11. DUROGESIC MATRIX [Suspect]
     Active Substance: FENTANYL
  12. DUROGESIC MATRIX [Suspect]
     Active Substance: FENTANYL

REACTIONS (4)
  - Product complaint [Unknown]
  - Wrong technique in product usage process [Unknown]
  - Product physical issue [Unknown]
  - Drug ineffective [Unknown]
